FAERS Safety Report 13779644 (Version 1)
Quarter: 2017Q3

REPORT INFORMATION
  Report Type: Spontaneous
  Country: RU (occurrence: RU)
  Receive Date: 20170722
  Receipt Date: 20170722
  Transmission Date: 20171127
  Serious: Yes (Life-Threatening, Hospitalization)
  Sender: FDA-Public Use
  Company Number: RU-ROCHE-1962007

PATIENT
  Age: 3 Year
  Sex: Female
  Weight: 13 kg

DRUGS (10)
  1. CYTARABINE. [Suspect]
     Active Substance: CYTARABINE
     Indication: PRODUCT USED FOR UNKNOWN INDICATION
     Route: 065
     Dates: start: 20160505
  2. ACICLOVIR [Concomitant]
     Active Substance: ACYCLOVIR
     Indication: STOMATITIS
     Route: 065
     Dates: start: 20170511, end: 20170530
  3. DAUNORUBICIN [Suspect]
     Active Substance: DAUNORUBICIN
     Indication: PRODUCT USED FOR UNKNOWN INDICATION
     Route: 065
     Dates: start: 20160505, end: 20160723
  4. MERCAPTOPURINE. [Suspect]
     Active Substance: MERCAPTOPURINE
     Indication: PRODUCT USED FOR UNKNOWN INDICATION
     Route: 065
     Dates: start: 20160820, end: 20170505
  5. VESANOID [Suspect]
     Active Substance: TRETINOIN
     Indication: PRODUCT USED FOR UNKNOWN INDICATION
     Dosage: THE DOSE TAKEN WAS 20 MG AND AFTER THAT AE DEVELOPED.
     Route: 048
     Dates: start: 20160505, end: 20170310
  6. METRONIDAZOLE. [Suspect]
     Active Substance: METRONIDAZOLE
     Indication: FEBRILE NEUTROPENIA
     Route: 065
     Dates: start: 20170511, end: 20170530
  7. CEFTRIAXONE. [Suspect]
     Active Substance: CEFTRIAXONE
     Indication: FEBRILE NEUTROPENIA
     Route: 065
     Dates: start: 20170508, end: 20170517
  8. METHOTREXATE. [Suspect]
     Active Substance: METHOTREXATE
     Indication: PRODUCT USED FOR UNKNOWN INDICATION
     Route: 065
     Dates: start: 20160820, end: 20170505
  9. MITOXANTRONE [Suspect]
     Active Substance: MITOXANTRONE HYDROCHLORIDE
     Indication: PRODUCT USED FOR UNKNOWN INDICATION
     Route: 065
     Dates: start: 20170512
  10. FLUCONAZOLE. [Concomitant]
     Active Substance: FLUCONAZOLE
     Indication: MUCOSAL INFLAMMATION
     Route: 065
     Dates: start: 20170511, end: 20170517

REACTIONS (3)
  - Hemiparesis [Unknown]
  - Cerebral haemorrhage [Unknown]
  - Acute leukaemia [Recovered/Resolved]

NARRATIVE: CASE EVENT DATE: 20170513
